FAERS Safety Report 5867246-7 (Version None)
Quarter: 2008Q3

REPORT INFORMATION
  Report Type: 
  Country: None (occurrence: None)
  Receive Date: 20080902
  Receipt Date: 20080825
  Transmission Date: 20090109
  Serious: Yes (Death, Life-Threatening, Hospitalization, Disabling)
  Sender: FDA-Public Use
  Company Number: US-MERCK-0808USA04552

PATIENT
  Age: 50 Year
  Sex: Female

DRUGS (1)
  1. CANCIDAS [Suspect]
     Indication: ANTIFUNGAL PROPHYLAXIS
     Route: 042

REACTIONS (2)
  - ACUTE HEPATIC FAILURE [None]
  - DEATH [None]
